FAERS Safety Report 5572407-0 (Version None)
Quarter: 2007Q4

REPORT INFORMATION
  Report Type: 
  Country: None (occurrence: None)
  Receive Date: 20071219
  Receipt Date: 20071204
  Transmission Date: 20080405
  Serious: Yes (Other)
  Sender: FDA-Public Use
  Company Number: 2007PL000032

PATIENT
  Age: 61 Year
  Sex: Female

DRUGS (2)
  1. AZATHIOPRINE [Suspect]
     Indication: AUTOIMMUNE HEPATITIS
     Dosage: ; PO
     Route: 048
  2. CORTICOSTEROID NOS [Concomitant]

REACTIONS (2)
  - BREAST CANCER FEMALE [None]
  - MYOCARDIAL INFARCTION [None]
